FAERS Safety Report 5593761-X (Version None)
Quarter: 2007Q4

REPORT INFORMATION
  Report Type: 
  Country: None (occurrence: None)
  Receive Date: 20071218
  Receipt Date: 20070928
  Transmission Date: 20080405
  Serious: Yes (Hospitalization, Other)
  Sender: FDA-Public Use
  Company Number: 2006147011

PATIENT
  Age: 78 Year
  Sex: Male
  Weight: 83 kg

DRUGS (3)
  1. BEXTRA [Suspect]
     Indication: PAIN
     Dosage: 20 MG (20 MG,1 IN 1 D)
     Dates: start: 20020101
  2. VIOXX [Suspect]
     Indication: ARTHRALGIA
     Dosage: 12.5 MG (12.5 MG,1 IN 1 D),ORAL
     Route: 048
     Dates: start: 20010801, end: 20030103
  3. VIOXX [Suspect]
     Indication: ARTHRITIS
     Dosage: 12.5 MG (12.5 MG,1 IN 1 D),ORAL
     Route: 048
     Dates: start: 20010801, end: 20030103

REACTIONS (2)
  - CARDIAC FAILURE CONGESTIVE [None]
  - MYOCARDIAL INFARCTION [None]
